FAERS Safety Report 8767384 (Version 3)
Quarter: 2013Q3

REPORT INFORMATION
  Report Type: Spontaneous
  Country: US (occurrence: US)
  Receive Date: 20120903
  Receipt Date: 20130724
  Transmission Date: 20140515
  Serious: Yes (Hospitalization, Other)
  Sender: FDA-Public Use
  Company Number: US-BAYER-2012-088305

PATIENT
  Age: 25 Year
  Sex: Female
  Weight: 91.61 kg

DRUGS (8)
  1. YASMIN [Suspect]
     Indication: CONTRACEPTION
     Dosage: UNK
     Dates: start: 20020724, end: 20100621
  2. YAZ [Suspect]
     Dosage: UNK
     Dates: start: 20020724, end: 20100621
  3. CEFALEXIN [Concomitant]
     Dosage: UNK
     Route: 048
     Dates: start: 20100118
  4. TUSSINEX [Concomitant]
     Dosage: UNK
     Route: 048
     Dates: start: 20100118
  5. POTASSIUM CHLORIDE [Concomitant]
     Dosage: UNK
     Route: 048
     Dates: start: 20100624, end: 20100902
  6. LINCOMYCIN [Concomitant]
     Dosage: 30 MG, UNK
  7. VITAMIN B12 [Concomitant]
     Dosage: 1000 MCG
  8. LINCOCIN [Concomitant]
     Indication: INFECTION
     Dosage: UNK
     Dates: start: 20100118, end: 20100120

REACTIONS (34)
  - Nephrotic syndrome [None]
  - Tachycardia [None]
  - Nephrolithiasis [None]
  - Nephrolithiasis [None]
  - Breast mass [None]
  - Deep vein thrombosis [None]
  - Hypertension [None]
  - Hepatic enzyme abnormal [None]
  - Smear cervix abnormal [None]
  - Muscle spasms [None]
  - Fluid retention [None]
  - Swelling [None]
  - Skin warm [None]
  - Weight increased [None]
  - Pyrexia [None]
  - Headache [None]
  - Dyspnoea [None]
  - Fatigue [None]
  - Vomiting [None]
  - Abdominal pain [None]
  - Renal colic [None]
  - Haemorrhagic disorder [None]
  - Hormone level abnormal [None]
  - Alopecia [None]
  - Emotional distress [None]
  - Mood swings [None]
  - Pain [None]
  - Anxiety [None]
  - Vision blurred [None]
  - Insomnia [None]
  - Blood cholesterol increased [None]
  - Injury [None]
  - Blood viscosity increased [None]
  - General physical health deterioration [None]
